FAERS Safety Report 12702339 (Version 1)
Quarter: 2016Q3

REPORT INFORMATION
  Report Type: Spontaneous
  Country: US (occurrence: US)
  Receive Date: 20160831
  Receipt Date: 20160831
  Transmission Date: 20161109
  Serious: No
  Sender: FDA-Public Use
  Company Number: US-TRIS PHARMA, INC.-1056907

PATIENT
  Age: 82 Year
  Sex: Male
  Weight: 45.46 kg

DRUGS (1)
  1. DEXTROMETHORPHAN POLISTIREX ER OS [Suspect]
     Active Substance: DEXTROMETHORPHAN HYDROBROMIDE
     Indication: COUGH
     Route: 048
     Dates: start: 20160603

REACTIONS (3)
  - Somnolence [None]
  - Incorrect dose administered [None]
  - Decreased appetite [None]

NARRATIVE: CASE EVENT DATE: 20160603
